FAERS Safety Report 7876342-4 (Version None)
Quarter: 2011Q4

REPORT INFORMATION
  Report Type: 
  Country: None (occurrence: None)
  Receive Date: 20111031
  Receipt Date: 20111025
  Transmission Date: 20120403
  Serious: Yes (Hospitalization)
  Sender: FDA-Public Use
  Company Number: GB-MERCK-1110GBR00090

PATIENT
  Age: 85 Year
  Sex: Male

DRUGS (6)
  1. FERROUS FUMARATE [Concomitant]
     Indication: ANAEMIA
     Route: 048
  2. ASPIRIN [Concomitant]
     Route: 048
  3. INFLUENZA VIRUS VACCINE LIVE (UNSPECIFIED) [Concomitant]
     Route: 030
     Dates: start: 20110928, end: 20110928
  4. PRINIVIL [Concomitant]
     Route: 048
  5. ZOCOR [Suspect]
     Indication: HYPERCHOLESTEROLAEMIA
     Route: 048
     Dates: start: 20110728, end: 20111008
  6. METFORMIN [Concomitant]
     Route: 048

REACTIONS (3)
  - BLOOD CREATINE PHOSPHOKINASE INCREASED [None]
  - RENAL FAILURE [None]
  - RHABDOMYOLYSIS [None]
